FAERS Safety Report 20063348 (Version 4)
Quarter: 2021Q4

REPORT INFORMATION
  Report Type: Spontaneous
  Country: US (occurrence: US)
  Receive Date: 20211112
  Receipt Date: 20211215
  Transmission Date: 20220303
  Serious: No
  Sender: FDA-Public Use
  Company Number: US-UNITED THERAPEUTICS-UNT-2021-022734

PATIENT
  Sex: Female

DRUGS (8)
  1. REMODULIN [Suspect]
     Active Substance: TREPROSTINIL
     Indication: Pulmonary arterial hypertension
     Dosage: UNK, CONTINUING
     Route: 058
     Dates: start: 20211013
  2. REMODULIN [Suspect]
     Active Substance: TREPROSTINIL
     Dosage: 0.01375 ?G/KG, CONTINUING
     Route: 058
     Dates: start: 2021
  3. REMODULIN [Suspect]
     Active Substance: TREPROSTINIL
     Dosage: 0.0125 ?G/KG, CONTINUING
     Route: 058
     Dates: start: 2021
  4. REMODULIN [Suspect]
     Active Substance: TREPROSTINIL
     Dosage: 0.015 ?G/KG, CONTINUING
     Route: 058
     Dates: start: 20211111
  5. REMODULIN [Suspect]
     Active Substance: TREPROSTINIL
     Dosage: 0.01375 ?G/KG, CONTINUING (DECREASED DOSE)
     Route: 058
     Dates: start: 202111
  6. REMODULIN [Suspect]
     Active Substance: TREPROSTINIL
     Dosage: 0.01875 ?G/KG, CONTINUING
     Route: 058
     Dates: start: 2021
  7. LYRICA [Suspect]
     Active Substance: PREGABALIN
     Indication: Pain
     Dosage: UNK
     Route: 065
     Dates: start: 2021
  8. LYRICA [Suspect]
     Active Substance: PREGABALIN
     Dosage: 50 MG, BID
     Route: 065
     Dates: start: 2021

REACTIONS (13)
  - Headache [Unknown]
  - Vomiting [Recovering/Resolving]
  - Abdominal discomfort [Unknown]
  - Dizziness [Unknown]
  - Device leakage [Unknown]
  - Infusion site pruritus [Unknown]
  - Infusion site pain [Recovered/Resolved]
  - Pruritus [Unknown]
  - Device malfunction [Unknown]
  - Depressed mood [Recovered/Resolved]
  - Nausea [Recovering/Resolving]
  - Pain [Unknown]
  - Malaise [Unknown]

NARRATIVE: CASE EVENT DATE: 20210101
